FAERS Safety Report 13492429 (Version 1)
Quarter: 2017Q2

REPORT INFORMATION
  Report Type: Report from Study
  Country: None (occurrence: IL)
  Receive Date: 20170427
  Receipt Date: 20170427
  Transmission Date: 20170830
  Serious: Yes (Hospitalization)
  Sender: FDA-Public Use
  Company Number: IL-ABBVIE-17P-082-1952418-00

PATIENT
  Age: 76 Year
  Sex: Male

DRUGS (1)
  1. DUODOPA [Suspect]
     Active Substance: CARBIDOPA\LEVODOPA
     Indication: PARKINSON^S DISEASE
     Dosage: AM DOSE, 9.6 ML, CURRENT FIXED RATE- 3.1 ML/ HOUR, E.D DOSE- 1.3 ML
     Route: 050
     Dates: start: 20130127

REACTIONS (2)
  - Weight decreased [Recovering/Resolving]
  - Bladder operation [Unknown]

NARRATIVE: CASE EVENT DATE: 201704
